FAERS Safety Report 9256866 (Version 1)
Quarter: 2013Q2

REPORT INFORMATION
  Report Type: Spontaneous
  Country: US (occurrence: None)
  Receive Date: 20130423
  Receipt Date: 20130423
  Transmission Date: 20140414
  Serious: Yes (Other)
  Sender: FDA-Public Use
  Company Number: None

PATIENT
  Age: 31 Year
  Sex: Male
  Weight: 93.9 kg

DRUGS (2)
  1. LIPODISSOLVE MESOTHERAPY [Suspect]
     Indication: SURGERY
     Dates: start: 20120521, end: 20120628
  2. LIPODISSOLVE [Concomitant]

REACTIONS (1)
  - Abdominal distension [None]
